FAERS Safety Report 21039591 (Version 1)
Quarter: 2022Q3

REPORT INFORMATION
  Report Type: Spontaneous
  Country: CN (occurrence: None)
  Receive Date: 20220704
  Receipt Date: 20220704
  Transmission Date: 20221027
  Serious: Yes (Hospitalization)
  Sender: FDA-Public Use
  Company Number: CN-ROCHE-3125110

PATIENT
  Age: 53 Year
  Sex: Male
  Weight: 70 kg

DRUGS (4)
  1. AVASTIN [Suspect]
     Active Substance: BEVACIZUMAB
     Indication: Metastatic squamous cell carcinoma
     Route: 041
     Dates: start: 20201101
  2. NIMOTUZUMAB [Suspect]
     Active Substance: NIMOTUZUMAB
     Indication: Metastatic squamous cell carcinoma
     Route: 041
     Dates: start: 20201201
  3. PEMBROLIZUMAB [Suspect]
     Active Substance: PEMBROLIZUMAB
     Indication: Metastatic squamous cell carcinoma
     Route: 041
     Dates: start: 20210201
  4. TISLELIZUMAB [Suspect]
     Active Substance: TISLELIZUMAB
     Indication: Metastatic squamous cell carcinoma
     Route: 041
     Dates: start: 20201201

REACTIONS (2)
  - Pneumonia [Recovering/Resolving]
  - Off label use [Unknown]

NARRATIVE: CASE EVENT DATE: 20220114
